FAERS Safety Report 14956823 (Version 1)
Quarter: 2018Q2

REPORT INFORMATION
  Report Type: Spontaneous
  Country: US (occurrence: US)
  Receive Date: 20180509
  Receipt Date: 20180509
  Transmission Date: 20180711
  Serious: No
  Sender: FDA-Public Use
  Company Number: None

PATIENT
  Age: 59 Year
  Sex: Female

DRUGS (1)
  1. NATPARA (PARATHYROID HORMONE) [Suspect]
     Active Substance: PARATHYROID HORMONE
     Dosage: ?          OTHER FREQUENCY:Q MON, TUES, THURS;?
     Route: 058
     Dates: start: 20180310

REACTIONS (4)
  - Diarrhoea [None]
  - Alopecia [None]
  - Onychomadesis [None]
  - Fatigue [None]

NARRATIVE: CASE EVENT DATE: 20180508
